FAERS Safety Report 21718657 (Version 1)
Quarter: 2022Q4

REPORT INFORMATION
  Report Type: Report from Study
  Country: US (occurrence: US)
  Receive Date: 20221213
  Receipt Date: 20221213
  Transmission Date: 20230113
  Serious: Yes (Hospitalization, Other)
  Sender: FDA-Public Use
  Company Number: US-BRISTOL-MYERS SQUIBB COMPANY-2022-149774

PATIENT
  Age: 34 Year
  Sex: Female
  Weight: 82.5 kg

DRUGS (1)
  1. BELATACEPT [Suspect]
     Active Substance: BELATACEPT
     Indication: Immunosuppression
     Route: 042
     Dates: start: 20211018, end: 20221116

REACTIONS (2)
  - Sudden visual loss [Unknown]
  - Headache [Unknown]

NARRATIVE: CASE EVENT DATE: 20221201
